FAERS Safety Report 10163074 (Version 2)
Quarter: 2014Q2

REPORT INFORMATION
  Report Type: Report from Study
  Country: US (occurrence: US)
  Receive Date: 20140509
  Receipt Date: 20140609
  Transmission Date: 20141212
  Serious: Yes (Hospitalization)
  Sender: FDA-Public Use
  Company Number: US-ACTELION-A-US2014-98455

PATIENT
  Age: 71 Year
  Sex: Female

DRUGS (6)
  1. TRACLEER [Suspect]
     Indication: PULMONARY ARTERIAL HYPERTENSION
     Dosage: 62.5 MG, BID
     Route: 048
     Dates: start: 2013, end: 201403
  2. ADCIRCA [Concomitant]
     Dosage: UNK
     Dates: start: 201402, end: 201403
  3. SIMVASTATIN [Concomitant]
     Dosage: 20 MG, UNK
  4. AMLODIPINE [Concomitant]
     Dosage: 5 MG, QD
     Dates: end: 2014
  5. MICARDIS [Concomitant]
     Dosage: 80 MG, QD
     Dates: start: 2011, end: 2014
  6. COREG [Concomitant]
     Dosage: 3.125 MG, BID
     Dates: start: 201309

REACTIONS (9)
  - Anaemia [Recovered/Resolved]
  - Haemoglobin decreased [Recovered/Resolved]
  - Blood iron decreased [Recovered/Resolved]
  - Transfusion [Recovered/Resolved]
  - Mineral supplementation [Recovered/Resolved]
  - Dyspnoea [Unknown]
  - Nausea [Recovered/Resolved]
  - Dizziness [Recovered/Resolved]
  - Asthenia [Recovered/Resolved]
